FAERS Safety Report 7818415-8 (Version None)
Quarter: 2011Q4

REPORT INFORMATION
  Report Type: 
  Country: None (occurrence: None)
  Receive Date: 20111017
  Receipt Date: 20111011
  Transmission Date: 20120403
  Serious: Yes (Life-Threatening)
  Sender: FDA-Public Use
  Company Number: JP-ASTRAZENECA-2011SE54630

PATIENT
  Age: 74 Year
  Sex: Male
  Weight: 61 kg

DRUGS (6)
  1. ZOLADEX [Suspect]
     Route: 058
     Dates: start: 20110826
  2. ZOLPIDEM [Concomitant]
     Indication: INSOMNIA
     Route: 048
     Dates: start: 20050531, end: 20110906
  3. CASODEX [Suspect]
     Indication: PROSTATE CANCER
     Route: 048
     Dates: start: 20110603, end: 20110617
  4. VESTURIT [Concomitant]
     Indication: HYPERLIPIDAEMIA
     Route: 048
     Dates: start: 20070911, end: 20110906
  5. ZOLADEX [Suspect]
     Indication: PROSTATE CANCER
     Route: 058
     Dates: start: 20110603
  6. NORVASC [Concomitant]
     Indication: HYPERTENSION
     Route: 048
     Dates: start: 20050201, end: 20110906

REACTIONS (1)
  - HEPATITIS FULMINANT [None]
